FAERS Safety Report 19185354 (Version 2)
Quarter: 2022Q1

REPORT INFORMATION
  Report Type: Report from Study
  Country: US (occurrence: US)
  Receive Date: 20210427
  Receipt Date: 20220114
  Transmission Date: 20220423
  Serious: No
  Sender: FDA-Public Use
  Company Number: US-REGENERON PHARMACEUTICALS, INC.-2021-44243

PATIENT
  Age: 51 Year
  Sex: Female

DRUGS (1)
  1. CASIRIVIMAB\IMDEVIMAB [Suspect]
     Active Substance: CASIRIVIMAB\IMDEVIMAB
     Indication: COVID-19
     Dosage: 900MG OF CASIRIVIMAB AND 1500 MG OF IMDEVIMAB
     Route: 042
     Dates: start: 20210412, end: 20210412

REACTIONS (2)
  - Incorrect dose administered [Unknown]
  - Product label confusion [Unknown]

NARRATIVE: CASE EVENT DATE: 20210412
